FAERS Safety Report 9871811 (Version 1)
Quarter: 2014Q1

REPORT INFORMATION
  Report Type: Report from Study
  Country: JP (occurrence: JP)
  Receive Date: 20140205
  Receipt Date: 20140205
  Transmission Date: 20141002
  Serious: Yes (Hospitalization)
  Sender: FDA-Public Use
  Company Number: JP-TAKEDA-2014TJP001137

PATIENT
  Age: 78 Year
  Sex: Male

DRUGS (4)
  1. ALOGLIPTIN [Suspect]
     Indication: TYPE 2 DIABETES MELLITUS
     Dosage: 25 MG, QD
     Route: 048
     Dates: start: 20120827, end: 20121217
  2. JANUVIA [Concomitant]
     Indication: TYPE 2 DIABETES MELLITUS
     Dosage: 50 MG,1 DAYS
     Route: 048
     Dates: end: 20130827
  3. PREMINENT [Concomitant]
     Dosage: UNK
     Route: 048
  4. AMLODIN [Concomitant]
     Dosage: UNK
     Route: 048

REACTIONS (1)
  - Hospitalisation [Unknown]
